FAERS Safety Report 8125759-1 (Version None)
Quarter: 2012Q1

REPORT INFORMATION
  Report Type: 
  Country: None (occurrence: None)
  Receive Date: 20120206
  Receipt Date: 20120126
  Transmission Date: 20120608
  Serious: Yes (Other)
  Sender: FDA-Public Use
  Company Number: WAES 1202USA00127

PATIENT
  Age: 61 Year
  Sex: Male

DRUGS (6)
  1. OS TRUSOPT 1% DRPS [Suspect]
     Indication: PRODUCT USED FOR UNKNOWN INDICATION
     Dosage: 3 DRPS/DAILY/OPHT, 6 DRPS/DAILY/OPHT
     Route: 047
     Dates: start: 20100315, end: 20100924
  2. OS TRUSOPT 1% DRPS [Suspect]
     Indication: PRODUCT USED FOR UNKNOWN INDICATION
     Dosage: 3 DRPS/DAILY/OPHT, 6 DRPS/DAILY/OPHT
     Route: 047
     Dates: start: 20110412
  3. OS TAFLUPROST 15 UG/ML DRPS [Suspect]
     Indication: OPEN ANGLE GLAUCOMA
     Dosage: 1 DRPS/DAILY/OPHT, 2 DRPS/DAILY/OPHT, 2 DRPS/DAILY/OPHT
     Route: 047
     Dates: start: 20100402, end: 20110422
  4. OS TAFLUPROST 15 UG/ML DRPS [Suspect]
     Indication: OPEN ANGLE GLAUCOMA
     Dosage: 1 DRPS/DAILY/OPHT, 2 DRPS/DAILY/OPHT, 2 DRPS/DAILY/OPHT
     Route: 047
     Dates: start: 20091208, end: 20100207
  5. OS TAFLUPROST 15 UG/ML DRPS [Suspect]
     Indication: OPEN ANGLE GLAUCOMA
     Dosage: 1 DRPS/DAILY/OPHT, 2 DRPS/DAILY/OPHT, 2 DRPS/DAILY/OPHT
     Route: 047
     Dates: start: 20100208, end: 20100330
  6. TIMOPTIC [Suspect]
     Indication: PRODUCT USED FOR UNKNOWN INDICATION
     Dosage: 4 DRPS/DAILY/OPHT
     Route: 047
     Dates: start: 20100402

REACTIONS (7)
  - TREATMENT NONCOMPLIANCE [None]
  - CONDITION AGGRAVATED [None]
  - VISUAL ACUITY REDUCED [None]
  - DRUG INEFFECTIVE [None]
  - CATARACT [None]
  - OCULAR HYPERTENSION [None]
  - VISUAL FIELD DEFECT [None]
